FAERS Safety Report 5938051-8 (Version None)
Quarter: 2008Q4

REPORT INFORMATION
  Report Type: 
  Country: None (occurrence: None)
  Receive Date: 20081031
  Receipt Date: 20081023
  Transmission Date: 20090506
  Serious: Yes (Other)
  Sender: FDA-Public Use
  Company Number: PHHY2008AR25777

PATIENT
  Sex: Female

DRUGS (1)
  1. ACLASTA [Suspect]
     Indication: OSTEOPENIA
     Dosage: 1 AMP ANNUAL
     Dates: start: 20081022

REACTIONS (4)
  - GENERALISED ERYTHEMA [None]
  - INFLAMMATION [None]
  - PRURITUS [None]
  - VEIN DISORDER [None]
